FAERS Safety Report 12617932 (Version 1)
Quarter: 2016Q3

REPORT INFORMATION
  Report Type: Spontaneous
  Country: US (occurrence: None)
  Receive Date: 20160802
  Receipt Date: 20160802
  Transmission Date: 20161109
  Serious: Yes (Disabling)
  Sender: FDA-Public Use
  Company Number: None

PATIENT
  Age: 34 Year
  Sex: Female
  Weight: 61.69 kg

DRUGS (1)
  1. DEXTROAMPHETAMINE 10MG TAB, PILL, 10 MG BARR LABORATORIES [Suspect]
     Active Substance: DEXTROAMPHETAMINE SULFATE
     Indication: ATTENTION DEFICIT/HYPERACTIVITY DISORDER
     Dosage: 30 TABLET(S) IN THE MORNING TAKEN BY MOUTH
     Route: 048

REACTIONS (6)
  - Headache [None]
  - Oropharyngeal pain [None]
  - Dizziness [None]
  - Nausea [None]
  - Dry mouth [None]
  - Product substitution issue [None]

NARRATIVE: CASE EVENT DATE: 20160718
